FAERS Safety Report 9803387 (Version 1)
Quarter: 2014Q1

REPORT INFORMATION
  Report Type: Spontaneous
  Country: IN (occurrence: None)
  Receive Date: 20140103
  Receipt Date: 20140103
  Transmission Date: 20141002
  Serious: Yes (Hospitalization)
  Sender: FDA-Public Use
  Company Number: IMP_06918_2013

PATIENT
  Age: 12 Year
  Sex: Male

DRUGS (1)
  1. DIVALPROEX [Suspect]
     Indication: GRAND MAL CONVULSION

REACTIONS (12)
  - Convulsion [None]
  - Condition aggravated [None]
  - Pain in extremity [None]
  - Blood lactate dehydrogenase increased [None]
  - Hepatic function abnormal [None]
  - C-reactive protein increased [None]
  - Cerebral infarction [None]
  - Myositis [None]
  - Hepatotoxicity [None]
  - Myopathy [None]
  - Lactic acidosis [None]
  - MELAS syndrome [None]
